FAERS Safety Report 18567303 (Version 1)
Quarter: 2020Q4

REPORT INFORMATION
  Report Type: Report from Study
  Country: US (occurrence: US)
  Receive Date: 20201202
  Receipt Date: 20201202
  Transmission Date: 20210114
  Serious: Yes (Hospitalization)
  Sender: FDA-Public Use
  Company Number: US-BIOGEN-2020BI00951191

PATIENT
  Sex: Male

DRUGS (1)
  1. TECFIDERA [Suspect]
     Active Substance: DIMETHYL FUMARATE
     Indication: MULTIPLE SCLEROSIS
     Route: 065
     Dates: start: 20150707, end: 202009

REACTIONS (4)
  - Off label use [Unknown]
  - Pneumonia aspiration [Unknown]
  - Cardiac disorder [Recovered/Resolved]
  - Pyrexia [Recovered/Resolved]
